FAERS Safety Report 6603485-5 (Version None)
Quarter: 2010Q1

REPORT INFORMATION
  Report Type: 
  Country: None (occurrence: None)
  Receive Date: 20100226
  Receipt Date: 20090715
  Transmission Date: 20100710
  Serious: No
  Sender: FDA-Public Use
  Company Number: A0797111A

PATIENT
  Sex: Male

DRUGS (2)
  1. VALTREX [Suspect]
     Dosage: 1G THREE TIMES PER DAY
     Route: 048
     Dates: start: 20090701, end: 20090714
  2. MULTIPLE MEDICATIONS [Concomitant]

REACTIONS (4)
  - DRUG INEFFECTIVE [None]
  - IMMOBILE [None]
  - INSOMNIA [None]
  - PAIN [None]
